FAERS Safety Report 16855546 (Version 1)
Quarter: 2019Q3

REPORT INFORMATION
  Report Type: Spontaneous
  Country: PK (occurrence: PK)
  Receive Date: 20190926
  Receipt Date: 20190926
  Transmission Date: 20191005
  Serious: Yes (Death)
  Sender: FDA-Public Use
  Company Number: PK-PFIZER INC-2019398084

PATIENT
  Age: 30 Year
  Sex: Female

DRUGS (3)
  1. FOSFOMYCIN [Suspect]
     Active Substance: FOSFOMYCIN
     Indication: RAOULTELLA ORNITHINOLYTICA INFECTION
     Dosage: UNK
     Route: 042
  2. COTRIMOXAZOLE [Suspect]
     Active Substance: SULFAMETHOXAZOLE\TRIMETHOPRIM
     Indication: RAOULTELLA ORNITHINOLYTICA INFECTION
     Dosage: UNK
     Route: 042
  3. TIGECYCLINE. [Suspect]
     Active Substance: TIGECYCLINE
     Indication: RAOULTELLA ORNITHINOLYTICA INFECTION
     Dosage: UNK
     Route: 042

REACTIONS (2)
  - Systemic candida [Fatal]
  - Drug ineffective [Unknown]
